FAERS Safety Report 24213234 (Version 1)
Quarter: 2024Q3

REPORT INFORMATION
  Report Type: Spontaneous
  Country: FR (occurrence: FR)
  Receive Date: 20240815
  Receipt Date: 20240815
  Transmission Date: 20241016
  Serious: Yes (Hospitalization)
  Sender: PFIZER
  Company Number: None

PATIENT
  Age: 40 Year
  Sex: Female
  Weight: 56 kg

DRUGS (4)
  1. CLINDAMYCIN [Suspect]
     Active Substance: CLINDAMYCIN
     Indication: Dental cyst
     Dosage: 600 MG, 2X/DAY
     Route: 048
     Dates: start: 20240325, end: 20240327
  2. CLINDAMYCIN [Suspect]
     Active Substance: CLINDAMYCIN
     Dosage: 600 MG, 3X/DAY
     Route: 048
     Dates: start: 20240327, end: 20240402
  3. BIRODOGYL [Suspect]
     Active Substance: METRONIDAZOLE\SPIRAMYCIN
     Indication: Dental cyst
     Dosage: UNK
     Route: 048
     Dates: start: 20240314, end: 20240324
  4. LEVOFLOXACIN [Concomitant]
     Active Substance: LEVOFLOXACIN
     Indication: Dental cyst
     Dosage: UNK
     Route: 048
     Dates: start: 20240324, end: 20240325

REACTIONS (2)
  - Rash maculo-papular [Recovered/Resolved]
  - Allergy test positive [Recovered/Resolved]

NARRATIVE: CASE EVENT DATE: 20240401
